FAERS Safety Report 6500036-0 (Version None)
Quarter: 2009Q4

REPORT INFORMATION
  Report Type: 
  Country: None (occurrence: None)
  Receive Date: 20091216
  Receipt Date: 20091125
  Transmission Date: 20100525
  Serious: No
  Sender: FDA-Public Use
  Company Number: US-JNJFOC-20091108049

PATIENT
  Age: 40 Year
  Sex: Female

DRUGS (1)
  1. INVEGA [Suspect]
     Indication: AFFECTIVE DISORDER
     Route: 048

REACTIONS (1)
  - TREMOR [None]
